FAERS Safety Report 17960018 (Version 1)
Quarter: 2020Q2

REPORT INFORMATION
  Report Type: Spontaneous
  Country: PT (occurrence: PT)
  Receive Date: 20200630
  Receipt Date: 20200630
  Transmission Date: 20200714
  Serious: Yes (Other)
  Sender: FDA-Public Use
  Company Number: PT-ALVOGEN-2020-ALVOGEN-108838

PATIENT
  Age: 20 Year
  Sex: Female

DRUGS (11)
  1. BUDESONIDE. [Suspect]
     Active Substance: BUDESONIDE
     Indication: POUCHITIS
     Dosage: UNK
     Route: 048
  2. ADALIMUMAB [Suspect]
     Active Substance: ADALIMUMAB
     Indication: AUTOIMMUNE HAEMOLYTIC ANAEMIA
     Dosage: UNK
     Route: 065
  3. INFLIXIMAB [Suspect]
     Active Substance: INFLIXIMAB
     Indication: COLITIS ULCERATIVE
     Dosage: DOSAGE FORM: LYOPHILIZED POWDER
     Route: 042
  4. INFLIXIMAB [Suspect]
     Active Substance: INFLIXIMAB
     Indication: POUCHITIS
     Dosage: DOSAGE FORM: LYOPHILIZED POWDER
     Route: 042
  5. METRONIDAZOLE. [Suspect]
     Active Substance: METRONIDAZOLE
     Indication: AUTOIMMUNE HAEMOLYTIC ANAEMIA
  6. INFLIXIMAB/RECOMBINANT [Suspect]
     Active Substance: INFLIXIMAB
     Indication: AUTOIMMUNE HAEMOLYTIC ANAEMIA
     Dosage: DOSAGE FORM: LYOPHILIZED POWDER
     Route: 042
  7. CIPROFLOXACIN. [Suspect]
     Active Substance: CIPROFLOXACIN
     Indication: POUCHITIS
     Dosage: UNK
     Route: 065
  8. BUDESONIDE. [Suspect]
     Active Substance: BUDESONIDE
     Indication: AUTOIMMUNE HAEMOLYTIC ANAEMIA
     Dosage: DOSAGE FORM: UNSPECIFIED
     Route: 048
  9. METRONIDAZOLE. [Suspect]
     Active Substance: METRONIDAZOLE
     Indication: POUCHITIS
  10. CIPROFLOXACIN. [Suspect]
     Active Substance: CIPROFLOXACIN
     Indication: AUTOIMMUNE HAEMOLYTIC ANAEMIA
     Route: 065
  11. ADALIMUMAB [Suspect]
     Active Substance: ADALIMUMAB
     Indication: POUCHITIS
     Dosage: UNK
     Route: 065

REACTIONS (5)
  - Autoimmune haemolytic anaemia [Recovering/Resolving]
  - Drug ineffective [Unknown]
  - Off label use [Unknown]
  - Therapeutic response decreased [Unknown]
  - Pouchitis [Recovering/Resolving]
